FAERS Safety Report 7513584-1 (Version None)
Quarter: 2011Q2

REPORT INFORMATION
  Report Type: 
  Country: None (occurrence: None)
  Receive Date: 20110531
  Receipt Date: 20110518
  Transmission Date: 20111010
  Serious: Yes (Hospitalization, Other)
  Sender: FDA-Public Use
  Company Number: US-BAYER-200830132NA

PATIENT
  Age: 43 Year
  Sex: Female

DRUGS (3)
  1. BETASERON [Suspect]
     Indication: RELAPSING-REMITTING MULTIPLE SCLEROSIS
     Route: 058
     Dates: start: 20080508, end: 20080606
  2. BETASERON [Suspect]
     Indication: MULTIPLE SCLEROSIS
     Route: 058
     Dates: start: 20070115, end: 20080401
  3. BETASERON [Suspect]
     Dosage: 8 MIU, QOD
     Route: 058
     Dates: start: 20080810

REACTIONS (6)
  - VISION BLURRED [None]
  - MULTIPLE SCLEROSIS RELAPSE [None]
  - ABASIA [None]
  - OEDEMA PERIPHERAL [None]
  - WALKING DISABILITY [None]
  - VISUAL IMPAIRMENT [None]
